FAERS Safety Report 23147487 (Version 1)
Quarter: 2023Q4

REPORT INFORMATION
  Report Type: Report from Study
  Country: US (occurrence: None)
  Receive Date: 20231106
  Receipt Date: 20231106
  Transmission Date: 20240109
  Serious: Yes (Life-Threatening, Hospitalization)
  Sender: FDA-Public Use
  Company Number: 2023A249185

PATIENT
  Sex: Male
  Weight: 68.9 kg

DRUGS (18)
  1. CALQUENCE [Suspect]
     Active Substance: ACALABRUTINIB
     Indication: Chronic lymphocytic leukaemia
     Route: 048
     Dates: start: 20220401
  2. ATORVASTATIN [Concomitant]
     Active Substance: ATORVASTATIN
  3. ELIQUIS [Concomitant]
     Active Substance: APIXABAN
  4. FAMOTIDINE [Concomitant]
     Active Substance: FAMOTIDINE
  5. BREO ELLIPTA [Concomitant]
     Active Substance: FLUTICASONE FUROATE\VILANTEROL TRIFENATATE
  6. LEVOTHYROXINE [Concomitant]
     Active Substance: LEVOTHYROXINE
  7. MIRALAX [Concomitant]
     Active Substance: POLYETHYLENE GLYCOL 3350
  8. METAMUCIL [Concomitant]
     Active Substance: PLANTAGO SEED
  9. VITAMINS [Concomitant]
     Active Substance: VITAMINS
  10. LOSARTAN [Concomitant]
     Active Substance: LOSARTAN
  11. HYDRALAZINE [Concomitant]
     Active Substance: HYDRALAZINE HYDROCHLORIDE
  12. FLONASE [Concomitant]
     Active Substance: FLUTICASONE PROPIONATE
  13. FUROSEMIDE [Concomitant]
     Active Substance: FUROSEMIDE
  14. PIOGLITAZONE [Concomitant]
     Active Substance: PIOGLITAZONE
  15. METOPROLOL [Concomitant]
     Active Substance: METOPROLOL
  16. ALLOPURINOL [Concomitant]
     Active Substance: ALLOPURINOL
  17. ALBUTEROL [Concomitant]
     Active Substance: ALBUTEROL
  18. FERROUS SULFATE [Concomitant]
     Active Substance: FERROUS SULFATE

REACTIONS (2)
  - White blood cell count decreased [Unknown]
  - Drug hypersensitivity [Unknown]
